FAERS Safety Report 5708501-0 (Version None)
Quarter: 2008Q2

REPORT INFORMATION
  Report Type: 
  Country: None (occurrence: None)
  Receive Date: 20080417
  Receipt Date: 20070307
  Transmission Date: 20081010
  Serious: Yes (Other)
  Sender: FDA-Public Use
  Company Number: US-BRISTOL-MYERS SQUIBB COMPANY-13669205

PATIENT
  Age: 51 Year
  Sex: Female
  Weight: 61 kg

DRUGS (9)
  1. CARBOPLATIN [Suspect]
     Indication: LUNG NEOPLASM MALIGNANT
     Route: 042
     Dates: start: 20070202, end: 20070202
  2. LIPITOR [Concomitant]
  3. ONE-A-DAY [Concomitant]
  4. DECADRON [Concomitant]
  5. PROCRIT [Concomitant]
  6. LUNESTA [Concomitant]
  7. NYSTATIN [Concomitant]
  8. NEULASTA [Concomitant]
  9. GEMZAR [Concomitant]

REACTIONS (3)
  - DYSPNOEA [None]
  - ERYTHEMA [None]
  - VOMITING [None]
